FAERS Safety Report 9753254 (Version 3)
Quarter: 2015Q3

REPORT INFORMATION
  Report Type: Spontaneous
  Country: US (occurrence: US)
  Receive Date: 20131213
  Receipt Date: 20150805
  Transmission Date: 20151125
  Serious: No
  Sender: FDA-Public Use
  Company Number: US-GILEAD-2010-0027633

PATIENT
  Age: 66 Year
  Sex: Male
  Weight: 125.64 kg

DRUGS (33)
  1. PARACETAMOL/HYDROCODONE BITARTRATE [Concomitant]
  2. VENTAVIS [Concomitant]
     Active Substance: ILOPROST
  3. AVAPRO [Concomitant]
     Active Substance: IRBESARTAN
  4. OMEPRAZOLE. [Concomitant]
     Active Substance: OMEPRAZOLE
  5. PATANOL [Concomitant]
     Active Substance: OLOPATADINE HYDROCHLORIDE
  6. LUMIGAN [Concomitant]
     Active Substance: BIMATOPROST
  7. CHERATUSSIN AC [Concomitant]
     Active Substance: CODEINE PHOSPHATE\GUAIFENESIN
  8. SPIRIVA [Concomitant]
     Active Substance: TIOTROPIUM BROMIDE MONOHYDRATE
  9. DOXAZOSIN MESILATE [Concomitant]
     Active Substance: DOXAZOSIN MESYLATE
  10. AMLODIPINE BESYLATE. [Concomitant]
     Active Substance: AMLODIPINE BESYLATE
  11. METFORMIN HCL [Concomitant]
     Active Substance: METFORMIN HYDROCHLORIDE
  12. LETAIRIS [Suspect]
     Active Substance: AMBRISENTAN
     Indication: PULMONARY ARTERIAL HYPERTENSION
     Route: 048
     Dates: start: 20090402
  13. LASIX [Concomitant]
     Active Substance: FUROSEMIDE
  14. ADVAIR HFA [Concomitant]
     Active Substance: FLUTICASONE PROPIONATE\SALMETEROL XINAFOATE
  15. ALEVE [Concomitant]
     Active Substance: NAPROXEN SODIUM
  16. DUONEB [Concomitant]
     Active Substance: ALBUTEROL SULFATE\IPRATROPIUM BROMIDE
  17. GLIPIZIDE. [Concomitant]
     Active Substance: GLIPIZIDE
  18. ALBUTEROL SULFATE HFA [Concomitant]
  19. LANTUS [Concomitant]
     Active Substance: INSULIN GLARGINE
  20. CARDURA [Concomitant]
     Active Substance: DOXAZOSIN MESYLATE
  21. OXYCODONE HCL - ACETAMINOPHEN [Concomitant]
  22. REVATIO [Concomitant]
     Active Substance: SILDENAFIL CITRATE
  23. SPIRONOLACTONE. [Concomitant]
     Active Substance: SPIRONOLACTONE
  24. TYLENOL [Concomitant]
     Active Substance: ACETAMINOPHEN
  25. FLONASE [Concomitant]
     Active Substance: FLUTICASONE PROPIONATE
  26. PRILOSEC [Concomitant]
     Active Substance: OMEPRAZOLE MAGNESIUM
  27. GLUCOSAMINE CHONDROITIN [Concomitant]
     Active Substance: CHONDROITIN SULFATE (BOVINE)\GLUCOSAMINE HYDROCHLORIDE
  28. NORVASC [Concomitant]
     Active Substance: AMLODIPINE BESYLATE
  29. ALDACTONE [Concomitant]
     Active Substance: SPIRONOLACTONE
  30. ZOCOR [Concomitant]
     Active Substance: SIMVASTATIN
  31. GLUCOPHAGE [Concomitant]
     Active Substance: METFORMIN HYDROCHLORIDE
  32. FUROSEMIDE. [Concomitant]
     Active Substance: FUROSEMIDE
  33. ANDRODERM [Concomitant]
     Active Substance: TESTOSTERONE

REACTIONS (3)
  - Dizziness [Unknown]
  - Oedema [Unknown]
  - Nasal congestion [Unknown]
